FAERS Safety Report 6802561-1 (Version None)
Quarter: 2010Q2

REPORT INFORMATION
  Report Type: 
  Country: None (occurrence: None)
  Receive Date: 20100629
  Receipt Date: 20081019
  Transmission Date: 20101027
  Serious: Yes (Other)
  Sender: FDA-Public Use
  Company Number: US-PFIZER INC-2007044445

PATIENT
  Sex: Female
  Weight: 88 kg

DRUGS (8)
  1. ALDACTONE [Suspect]
     Indication: HYPERTENSION
     Dates: start: 20070101
  2. CELEBREX [Suspect]
     Indication: ARTHRITIS
     Dates: start: 20080101
  3. CELEBREX [Suspect]
     Indication: PAIN
  4. LOTREL [Concomitant]
     Dosage: 10/40
  5. LOVASTATIN [Concomitant]
  6. METOPROLOL [Concomitant]
  7. ACETYLSALICYLIC ACID [Concomitant]
  8. DRUG, UNSPECIFIED [Concomitant]

REACTIONS (9)
  - ABDOMINAL PAIN UPPER [None]
  - ARTHRITIS [None]
  - BREAST ENLARGEMENT [None]
  - BREAST PAIN [None]
  - FEELING ABNORMAL [None]
  - MALAISE [None]
  - PAIN IN EXTREMITY [None]
  - PANCREATITIS [None]
  - SOMATISATION DISORDER [None]
